FAERS Safety Report 5909334-2 (Version None)
Quarter: 2008Q4

REPORT INFORMATION
  Report Type: 
  Country: None (occurrence: None)
  Receive Date: 20081002
  Receipt Date: 20080924
  Transmission Date: 20090506
  Serious: Yes (Hospitalization)
  Sender: FDA-Public Use
  Company Number: TCI2008A04831

PATIENT
  Age: 72 Year
  Sex: Male

DRUGS (10)
  1. ACTOS [Suspect]
     Indication: TYPE 2 DIABETES MELLITUS
     Dosage: 30 MG (30 MG,1 IN 1 D)   PER ORAL
     Route: 048
     Dates: start: 20010801
  2. GLUFAST (MITIGLINIDE CALCIUM HYDRATE) [Suspect]
     Indication: TYPE 2 DIABETES MELLITUS
     Dosage: 30 MG (10 MG, 3 IN 1 D)  PER ORAL
     Route: 048
     Dates: start: 20041101
  3. BASEN TABLETS 0.3 (VOGLIBOSE) [Concomitant]
  4. BLOPRESS TABLETS 12 (CANUESARTAN CILEXETIL) [Concomitant]
  5. CARVEDILOL [Concomitant]
  6. ASPIRIN [Concomitant]
  7. ZETIA (EZETIMIEE) [Concomitant]
  8. CRESTOR [Concomitant]
  9. AMARYL [Concomitant]
  10. GLYBURIDE [Concomitant]

REACTIONS (6)
  - BLOOD PRESSURE INCREASED [None]
  - CORONARY ARTERY OCCLUSION [None]
  - GLYCOSYLATED HAEMOGLOBIN INCREASED [None]
  - LOW DENSITY LIPOPROTEIN INCREASED [None]
  - MYOCARDIAL INFARCTION [None]
  - WEIGHT DECREASED [None]
